FAERS Safety Report 9467105 (Version 1)
Quarter: 2013Q3

REPORT INFORMATION
  Report Type: Spontaneous
  Country: JP (occurrence: JP)
  Receive Date: 20130820
  Receipt Date: 20130820
  Transmission Date: 20140515
  Serious: Yes (Hospitalization)
  Sender: FDA-Public Use
  Company Number: JP-B.I. PHARMACEUTICALS,INC./RIDGEFIELD-2013-BI-25137NB

PATIENT
  Age: 45 Year
  Sex: Female

DRUGS (2)
  1. MICAMLO COMBINATION [Suspect]
     Dosage: 10 ANZ
     Route: 048
     Dates: start: 20130809, end: 20130809
  2. CARDENALIN [Suspect]
     Dosage: 10 ANZ
     Route: 048
     Dates: start: 20130809, end: 20130809

REACTIONS (2)
  - Shock [Recovered/Resolved]
  - Overdose [Unknown]
